FAERS Safety Report 4370059-9 (Version None)
Quarter: 2004Q2

REPORT INFORMATION
  Report Type: 
  Country: None (occurrence: None)
  Receive Date: 20040527
  Receipt Date: 20040514
  Transmission Date: 20050107
  Serious: Yes (Other)
  Sender: FDA-Public Use
  Company Number: DE-JNJFOC-20040502894

PATIENT
  Age: 63 Year
  Sex: Female
  Weight: 85 kg

DRUGS (5)
  1. REMICADE [Suspect]
     Indication: RHEUMATOID ARTHRITIS
     Dosage: 3 MG/KG, 2 IN 1 WEEK, INTRAVENOUS
     Route: 042
     Dates: start: 20040205, end: 20040510
  2. PREDNISONE TAB [Concomitant]
  3. BISOPROLOL FUMARATE [Concomitant]
  4. MCP (METOCLOPRAMIDE HYDROCHLORIDE) DROPS [Concomitant]
  5. VIOXX [Concomitant]

REACTIONS (2)
  - ANAPHYLACTIC SHOCK [None]
  - INFUSION RELATED REACTION [None]
